FAERS Safety Report 25617377 (Version 1)
Quarter: 2025Q3

REPORT INFORMATION
  Report Type: Spontaneous
  Country: EU (occurrence: EU)
  Receive Date: 20250729
  Receipt Date: 20250729
  Transmission Date: 20251020
  Serious: Yes (Hospitalization)
  Sender: ROCHE
  Company Number: None

PATIENT
  Age: 64 Year
  Sex: Male
  Weight: 69 kg

DRUGS (2)
  1. TECENTRIQ [Suspect]
     Active Substance: ATEZOLIZUMAB
     Indication: Hepatic cancer
     Route: 042
     Dates: start: 20240912, end: 20250610
  2. MVASI [Suspect]
     Active Substance: BEVACIZUMAB-AWWB
     Indication: Hepatic cancer
     Route: 042
     Dates: start: 20240912, end: 20250610

REACTIONS (3)
  - Oesophagitis [Recovering/Resolving]
  - Mucosal inflammation [Recovering/Resolving]
  - Onychomadesis [Recovering/Resolving]

NARRATIVE: CASE EVENT DATE: 20250601
